FAERS Safety Report 5782001-4 (Version None)
Quarter: 2008Q2

REPORT INFORMATION
  Report Type: 
  Country: None (occurrence: None)
  Receive Date: 20080623
  Receipt Date: 20080104
  Transmission Date: 20081010
  Serious: No
  Sender: FDA-Public Use
  Company Number: US-ASTRAZENECA-2008UW00319

PATIENT
  Age: 41 Year
  Sex: Male
  Weight: 25.8 kg

DRUGS (5)
  1. RHINOCORT [Suspect]
     Indication: MULTIPLE ALLERGIES
     Route: 045
     Dates: end: 20080103
  2. VITAMIN D [Concomitant]
  3. AMITRIPTYLINE HCL [Concomitant]
  4. NORVIR [Concomitant]
  5. CLONAZEPAM [Concomitant]

REACTIONS (2)
  - EXPIRED DRUG ADMINISTERED [None]
  - SKIN ULCER [None]
